FAERS Safety Report 20387391 (Version 1)
Quarter: 2022Q1

REPORT INFORMATION
  Report Type: Spontaneous
  Country: US (occurrence: US)
  Receive Date: 20220127
  Receipt Date: 20220127
  Transmission Date: 20220423
  Serious: No
  Sender: FDA-Public Use
  Company Number: US-ALLERGAN-2105659US

PATIENT
  Age: 55 Year
  Sex: Male

DRUGS (6)
  1. BOTOX [Suspect]
     Active Substance: ONABOTULINUMTOXINA
     Indication: Torticollis
     Dosage: UNK, SINGLE
  2. BOTOX [Suspect]
     Active Substance: ONABOTULINUMTOXINA
     Indication: Muscle spasms
  3. VITAMINS [Concomitant]
     Active Substance: VITAMINS
  4. MOTRIN [Concomitant]
     Active Substance: IBUPROFEN
  5. METHOCARBAMOL [Concomitant]
     Active Substance: METHOCARBAMOL
     Indication: Muscle relaxant therapy
  6. CLARITIN [Concomitant]
     Active Substance: LORATADINE
     Indication: Seasonal allergy

REACTIONS (4)
  - Fatigue [Not Recovered/Not Resolved]
  - Eye discharge [Recovered/Resolved]
  - Muscular weakness [Recovered/Resolved]
  - Dry eye [Recovered/Resolved]
